FAERS Safety Report 10841570 (Version 1)
Quarter: 2015Q1

REPORT INFORMATION
  Report Type: Report from Study
  Country: US (occurrence: US)
  Receive Date: 20150220
  Receipt Date: 20150220
  Transmission Date: 20150721
  Serious: Yes (Hospitalization)
  Sender: FDA-Public Use
  Company Number: US-BIOGENIDEC-2015BI016440

PATIENT
  Age: 17 Year
  Sex: Male

DRUGS (1)
  1. TECFIDERA [Suspect]
     Active Substance: DIMETHYL FUMARATE
     Indication: MULTIPLE SCLEROSIS
     Route: 048
     Dates: start: 20130827

REACTIONS (3)
  - Fall [Recovered/Resolved]
  - Drug administered to patient of inappropriate age [Unknown]
  - Head injury [Unknown]

NARRATIVE: CASE EVENT DATE: 20130827
